FAERS Safety Report 22539955 (Version 1)
Quarter: 2023Q2

REPORT INFORMATION
  Report Type: Spontaneous
  Country: US (occurrence: US)
  Receive Date: 20230609
  Receipt Date: 20230609
  Transmission Date: 20230722
  Serious: No
  Sender: FDA-Public Use
  Company Number: US-GSKCCFUS-Case-01716419_AE-96760

PATIENT
  Sex: Female

DRUGS (1)
  1. BENLYSTA [Suspect]
     Active Substance: BELIMUMAB
     Indication: Product used for unknown indication
     Dosage: UNK

REACTIONS (6)
  - Rash [Unknown]
  - Rash pruritic [Unknown]
  - Rash erythematous [Unknown]
  - Injection site pain [Unknown]
  - Injection site mass [Unknown]
  - Condition aggravated [Unknown]
